FAERS Safety Report 16364443 (Version 3)
Quarter: 2020Q2

REPORT INFORMATION
  Report Type: Report from Study
  Country: None (occurrence: ES)
  Receive Date: 20190528
  Receipt Date: 20200602
  Transmission Date: 20200713
  Serious: Yes (Hospitalization)
  Sender: FDA-Public Use
  Company Number: ES-ABBVIE-18P-144-2451228-00

PATIENT
  Age: 63 Year
  Sex: Male

DRUGS (12)
  1. DUODOPA [Suspect]
     Active Substance: CARBIDOPA\LEVODOPA
     Dosage: 1400 MG DAILY
     Route: 050
     Dates: start: 20170321
  2. MADOPAR RETARD [Concomitant]
     Indication: PARKINSON^S DISEASE
     Route: 048
     Dates: start: 20170310
  3. ZANTAC [Concomitant]
     Active Substance: RANITIDINE HYDROCHLORIDE
     Indication: GASTROOESOPHAGEAL REFLUX DISEASE
     Route: 048
     Dates: start: 20180603
  4. SEROQUEL [Concomitant]
     Active Substance: QUETIAPINE FUMARATE
     Indication: HALLUCINATION
     Route: 048
     Dates: start: 20130603
  5. LIORESAL [Concomitant]
     Active Substance: BACLOFEN
     Indication: MUSCLE SPASTICITY
     Route: 048
     Dates: start: 20130603
  6. MOTILIUM [Concomitant]
     Active Substance: DOMPERIDONE
     Indication: PARKINSON^S DISEASE
     Route: 048
     Dates: start: 20170307, end: 20180124
  7. MADOPAR RETARD [Concomitant]
     Indication: PARKINSON^S DISEASE
     Route: 048
     Dates: start: 20170310
  8. MIRTAZAPINA [Concomitant]
     Active Substance: MIRTAZAPINE
     Indication: DEPRESSION
     Route: 048
     Dates: start: 20121115
  9. HIDROXIL [Concomitant]
     Active Substance: ALUMINUM HYDROXIDE
     Indication: VITAMIN B COMPLEX DEFICIENCY
     Dosage: 0.5/250/250MG
     Route: 048
     Dates: start: 20170511
  10. DUODOPA [Suspect]
     Active Substance: CARBIDOPA\LEVODOPA
     Indication: PARKINSON^S DISEASE
     Dosage: MD 9.5 ML, CD 2.7 ML/H, ED 2 ML
     Route: 050
     Dates: start: 20170308, end: 20170320
  11. SILVER NITRATE. [Concomitant]
     Active Substance: SILVER NITRATE
     Indication: STOMA SITE HYPERGRANULATION
     Route: 061
     Dates: start: 20190313, end: 20190313
  12. ALCALKA [Concomitant]
     Indication: LITHIASIS
     Route: 048
     Dates: start: 20180126

REACTIONS (5)
  - Salivary hypersecretion [Not Recovered/Not Resolved]
  - Perineal injury [Recovered/Resolved]
  - Stoma site infection [Recovered/Resolved]
  - Diarrhoea [Recovered/Resolved]
  - Inguinal hernia [Recovered/Resolved]

NARRATIVE: CASE EVENT DATE: 201705
